FAERS Safety Report 12818407 (Version 2)
Quarter: 2016Q4

REPORT INFORMATION
  Report Type: Report from Study
  Country: US (occurrence: US)
  Receive Date: 20161006
  Receipt Date: 20161130
  Transmission Date: 20170207
  Serious: Yes (Hospitalization, Other)
  Sender: FDA-Public Use
  Company Number: US-ROCHE-1633377

PATIENT
  Age: 51 Year
  Sex: Female
  Weight: 63.6 kg

DRUGS (4)
  1. BEVACIZUMAB [Suspect]
     Active Substance: BEVACIZUMAB
     Indication: OVARIAN CANCER
     Dosage: ON DAY 1. LAST DOSE PRIOR TO SAE ON:04/JUN/2015.
     Route: 042
     Dates: start: 20150604
  2. PACLITAXEL. [Suspect]
     Active Substance: PACLITAXEL
     Indication: OVARIAN CANCER
     Dosage: DAY 8. LAST DOSE PRIOR TO SAE ON 04/JUN/2015.
     Route: 033
  3. CISPLATIN. [Suspect]
     Active Substance: CISPLATIN
     Indication: OVARIAN CANCER
     Dosage: DAY 1 OR 2. LAST DOSE PRIOR TO SAE: 05/JUN/2015.
     Route: 033
  4. ABT-888 [Suspect]
     Active Substance: VELIPARIB
     Indication: OVARIAN CANCER
     Dosage: ON DAYS 2-5. LAST DOSE PRIOR TO SAE ON 08/JUN/2015.
     Route: 048
     Dates: start: 20150602

REACTIONS (9)
  - Nausea [Recovering/Resolving]
  - Diarrhoea [Recovering/Resolving]
  - Hypokalaemia [Unknown]
  - Neutrophil count decreased [Unknown]
  - Nausea [Unknown]
  - Vomiting [Recovering/Resolving]
  - Anaemia [Unknown]
  - White blood cell count decreased [Unknown]
  - Vomiting [Unknown]

NARRATIVE: CASE EVENT DATE: 20150607
